FAERS Safety Report 7348312-6 (Version None)
Quarter: 2011Q1

REPORT INFORMATION
  Report Type: 
  Country: None (occurrence: None)
  Receive Date: 20110311
  Receipt Date: 20110303
  Transmission Date: 20110831
  Serious: Yes (Hospitalization)
  Sender: FDA-Public Use
  Company Number: US-ELI_LILLY_AND_COMPANY-US201010003009

PATIENT
  Age: 64 Year
  Sex: Female

DRUGS (2)
  1. FORTEO [Suspect]
     Dosage: 20 UG, UNKNOWN
  2. FORTEO [Suspect]
     Dosage: 20 UG, UNKNOWN
     Dates: end: 20110302

REACTIONS (4)
  - CONSTIPATION [None]
  - PNEUMONIA [None]
  - ABDOMINAL PAIN [None]
  - MALAISE [None]
